FAERS Safety Report 17665146 (Version 1)
Quarter: 2020Q2

REPORT INFORMATION
  Report Type: Spontaneous
  Country: US (occurrence: US)
  Receive Date: 20200414
  Receipt Date: 20200414
  Transmission Date: 20200713
  Serious: Yes (Hospitalization, Other)
  Sender: FDA-Public Use
  Company Number: US-PFIZER INC-2020152750

PATIENT
  Age: 73 Year
  Sex: Male
  Weight: 89.36 kg

DRUGS (1)
  1. VYNDAQEL [Suspect]
     Active Substance: TAFAMIDIS MEGLUMINE
     Indication: CARDIAC AMYLOIDOSIS
     Dosage: 80 MG, 1X/DAY (20 MG TAKE 4 CAPSULES ONCE DAILY)
     Route: 048

REACTIONS (2)
  - Fluid retention [Unknown]
  - Renal impairment [Unknown]
